FAERS Safety Report 4809961-X (Version None)
Quarter: 2005Q4

REPORT INFORMATION
  Report Type: 
  Country: None (occurrence: None)
  Receive Date: 20051024
  Receipt Date: 20051011
  Transmission Date: 20060501
  Serious: Yes (Other)
  Sender: FDA-Public Use
  Company Number: 2005141163

PATIENT
  Sex: 0

DRUGS (2)
  1. FRAGMIN [Suspect]
     Indication: HAEMODIALYSIS
  2. FUTHAN (NAFAMOSTAT MESILATE) [Suspect]
     Indication: ILL-DEFINED DISORDER

REACTIONS (4)
  - BLOOD PRESSURE DECREASED [None]
  - DRUG HYPERSENSITIVITY [None]
  - EOSINOPHIL COUNT INCREASED [None]
  - PYREXIA [None]
